FAERS Safety Report 9498733 (Version 2)
Quarter: 2013Q3

REPORT INFORMATION
  Report Type: Report from Study
  Country: US (occurrence: US)
  Receive Date: 20130904
  Receipt Date: 20130926
  Transmission Date: 20140515
  Serious: Yes (Other)
  Sender: FDA-Public Use
  Company Number: US-BAXTER-2013BAX034354

PATIENT
  Sex: Female
  Weight: 46.36 kg

DRUGS (16)
  1. GAMMAGARD LIQUID [Suspect]
     Indication: PRIMARY IMMUNODEFICIENCY SYNDROME
     Route: 042
     Dates: start: 2011, end: 201109
  2. GAMMAGARD LIQUID [Suspect]
     Route: 058
     Dates: start: 201111, end: 201202
  3. CARIMUNE [Suspect]
     Indication: PRIMARY IMMUNODEFICIENCY SYNDROME
     Route: 042
     Dates: start: 201005, end: 2011
  4. HIZENTRA [Suspect]
     Indication: PRIMARY IMMUNODEFICIENCY SYNDROME
     Route: 042
     Dates: start: 201203
  5. ACEBUTOLOL HCL [Concomitant]
     Indication: HEART RATE
     Route: 048
     Dates: start: 1994
  6. MAGNESIUM [Concomitant]
     Indication: PRODUCT USED FOR UNKNOWN INDICATION
     Route: 048
     Dates: start: 2000
  7. TYLENOL [Concomitant]
     Indication: PREMEDICATION
     Route: 048
     Dates: start: 2010
  8. BENADRYL [Concomitant]
     Indication: PREMEDICATION
     Dosage: VARIED
     Route: 048
     Dates: start: 2010, end: 2012
  9. BENADRYL [Concomitant]
     Dosage: VARIED
     Route: 042
     Dates: start: 2010, end: 2012
  10. PREDNISONE [Concomitant]
     Indication: PREMEDICATION
     Route: 048
     Dates: start: 2011, end: 2012
  11. LEVALBUTEROL HCL [Concomitant]
     Indication: CHRONIC OBSTRUCTIVE PULMONARY DISEASE
     Dosage: 1.25 MG FOR EACH 2 ML BOTTLE
     Dates: start: 201210
  12. XANAX [Concomitant]
     Indication: PRODUCT USED FOR UNKNOWN INDICATION
     Route: 048
  13. OXYGEN [Concomitant]
     Indication: CHRONIC OBSTRUCTIVE PULMONARY DISEASE
     Route: 045
     Dates: start: 201207
  14. KEPPRA [Concomitant]
     Indication: CONVULSION
     Route: 048
     Dates: start: 20130628
  15. METHOTREXATE [Concomitant]
     Indication: PRODUCT USED FOR UNKNOWN INDICATION
     Route: 058
     Dates: start: 201307
  16. FOLIC ACID [Concomitant]
     Indication: PRODUCT USED FOR UNKNOWN INDICATION
     Route: 048
     Dates: start: 201307

REACTIONS (10)
  - Convulsion [Not Recovered/Not Resolved]
  - Autoimmune disorder [Not Recovered/Not Resolved]
  - Meningitis aseptic [Recovered/Resolved]
  - Alopecia [Not Recovered/Not Resolved]
  - Infusion site vesicles [Recovered/Resolved]
  - Headache [Recovered/Resolved]
  - Rash [Recovered/Resolved]
  - Pruritus [Recovered/Resolved]
  - Weight decreased [Unknown]
  - Heart rate increased [Not Recovered/Not Resolved]
